FAERS Safety Report 4664713-9 (Version None)
Quarter: 2005Q2

REPORT INFORMATION
  Report Type: 
  Country: None (occurrence: None)
  Receive Date: 20050516
  Receipt Date: 20050510
  Transmission Date: 20051028
  Serious: Yes (Hospitalization)
  Sender: FDA-Public Use
  Company Number: THQ2005A00408

PATIENT
  Age: 77 Year
  Sex: Male

DRUGS (6)
  1. LANSOPRAZOLE [Suspect]
     Dosage: 30 MG (10 MG, 1 IN 1  D) PER ORAL
     Route: 048
     Dates: start: 20050127, end: 20050201
  2. ZYVOX [Suspect]
     Indication: STAPHYLOCOCCAL INFECTION
     Dates: start: 20050104, end: 20050120
  3. PANTOPRAZOLE [Suspect]
     Dosage: (1 IN 1 D)
     Dates: start: 20050102, end: 20050127
  4. TAZOCIN (PIP /TAZO) [Concomitant]
  5. AMIODARNE [Concomitant]
  6. FLUCLOXACILLIN [Concomitant]

REACTIONS (2)
  - LIVER FUNCTION TEST ABNORMAL [None]
  - RENAL FAILURE ACUTE [None]
